FAERS Safety Report 10152190 (Version 1)
Quarter: 2014Q2

REPORT INFORMATION
  Report Type: Spontaneous
  Country: US (occurrence: None)
  Receive Date: 20140502
  Receipt Date: 20140502
  Transmission Date: 20141212
  Serious: No
  Sender: FDA-Public Use
  Company Number: None

PATIENT
  Age: 11 Year
  Sex: Male
  Weight: 36.29 kg

DRUGS (2)
  1. METHYLPHENIDATE HYDROCHLORIDE EX [Suspect]
     Indication: ATTENTION DEFICIT/HYPERACTIVITY DISORDER
     Route: 048
  2. METHYLPHENIDATE HYDROCHLORIDE EX [Suspect]
     Indication: ANXIETY
     Route: 048

REACTIONS (2)
  - Product substitution issue [None]
  - Drug ineffective [None]
